FAERS Safety Report 14950534 (Version 4)
Quarter: 2019Q2

REPORT INFORMATION
  Report Type: Report from Study
  Country: CA (occurrence: CA)
  Receive Date: 20180530
  Receipt Date: 20190617
  Transmission Date: 20190711
  Serious: Yes (Other)
  Sender: FDA-Public Use
  Company Number: CA-ROCHE-2129535

PATIENT
  Sex: Male
  Weight: 91.71 kg

DRUGS (4)
  1. AMITRIPTYLINE [Concomitant]
     Active Substance: AMITRIPTYLINE
     Dosage: AT BED TIME
     Route: 048
  2. OCREVUS [Suspect]
     Active Substance: OCRELIZUMAB
     Dosage: ONLY RECEIVED INITIAL DOSAGE. MAINTENANCE IN MAY
     Route: 042
  3. ZOPICLONE [Concomitant]
     Active Substance: ZOPICLONE
     Dosage: AT BED TIME
     Route: 048
  4. OCREVUS [Suspect]
     Active Substance: OCRELIZUMAB
     Indication: RELAPSING-REMITTING MULTIPLE SCLEROSIS
     Dosage: ONLY RECEIVED INITIAL DOSAGE. MAINTENANCE IN MAY
     Route: 042
     Dates: start: 20171115

REACTIONS (5)
  - Disturbance in attention [Unknown]
  - Balance disorder [Unknown]
  - Amnesia [Unknown]
  - Infusion related reaction [Recovered/Resolved]
  - Confusional state [Unknown]
